FAERS Safety Report 4625390-6 (Version None)
Quarter: 2005Q2

REPORT INFORMATION
  Report Type: 
  Country: None (occurrence: None)
  Receive Date: 20050325
  Receipt Date: 20041207
  Transmission Date: 20051028
  Serious: No
  Sender: FDA-Public Use
  Company Number: US_0411108460

PATIENT
  Age: 85 Year
  Sex: Female

DRUGS (10)
  1. FORTEO [Suspect]
     Indication: OSTEOPOROSIS
  2. ULTRACET [Concomitant]
  3. TYLENOL (CAPLET) [Concomitant]
  4. CORGARD [Concomitant]
  5. PRINIVIL [Concomitant]
  6. CALTRATE + D [Concomitant]
  7. ASPIRIN [Concomitant]
  8. ANTIVERT [Concomitant]
  9. BIOTIN [Concomitant]
  10. ATIVAN [Concomitant]

REACTIONS (2)
  - DIZZINESS [None]
  - PALPITATIONS [None]
